FAERS Safety Report 4303874-8 (Version None)
Quarter: 2004Q1

REPORT INFORMATION
  Report Type: 
  Country: None (occurrence: None)
  Receive Date: 20040225
  Receipt Date: 20040212
  Transmission Date: 20041129
  Serious: Yes (Hospitalization)
  Sender: FDA-Public Use
  Company Number: CH-GLAXOSMITHKLINE-B0323331A

PATIENT
  Age: 25 Year
  Sex: Male
  Weight: 74 kg

DRUGS (5)
  1. DEROXAT [Suspect]
     Indication: BIPOLAR DISORDER
     Dosage: 40MG PER DAY
     Route: 048
     Dates: start: 20000101
  2. RISPERIDONE [Suspect]
     Indication: BIPOLAR DISORDER
     Dosage: 3MG PER DAY
     Route: 048
     Dates: start: 20000101
  3. CLOTIAPINE [Suspect]
     Indication: BIPOLAR DISORDER
     Dosage: 40MG PER DAY
     Route: 048
     Dates: start: 20000101
  4. VALPROIC ACID [Concomitant]
     Indication: BIPOLAR DISORDER
     Dosage: 1000MG PER DAY
     Route: 048
     Dates: start: 20000101
  5. SINTROM [Concomitant]

REACTIONS (5)
  - DRUG INTERACTION [None]
  - PLEURITIC PAIN [None]
  - PULMONARY EMBOLISM [None]
  - PULMONARY INFARCTION [None]
  - TREATMENT NONCOMPLIANCE [None]
